FAERS Safety Report 8222356-4 (Version None)
Quarter: 2012Q1

REPORT INFORMATION
  Report Type: 
  Country: None (occurrence: None)
  Receive Date: 20120316
  Receipt Date: 20101116
  Transmission Date: 20120608
  Serious: Yes (Hospitalization)
  Sender: FDA-Public Use
  Company Number: GB-021455

PATIENT
  Age: 82 Year
  Sex: Male
  Weight: 79.6 kg

DRUGS (3)
  1. (CHLORAMBUCIL) [Suspect]
     Indication: CHRONIC LYMPHOCYTIC LEUKAEMIA
     Dosage: ORAL
     Route: 048
     Dates: start: 20100924
  2. OFATUMUMAB (OFATUMUMAB) [Suspect]
     Indication: CHRONIC LYMPHOCYTIC LEUKAEMIA
     Dosage: INJECTION INTRAVENOUS (NOT OTHERWISE SPECIFIED)
     Route: 042
     Dates: start: 20100923
  3. WHOLE BLOOD [Concomitant]

REACTIONS (7)
  - PHOTOPSIA [None]
  - HEADACHE [None]
  - DIZZINESS [None]
  - BLOOD PRESSURE DECREASED [None]
  - HEART RATE DECREASED [None]
  - TREMOR [None]
  - CARDIAC MURMUR [None]
